FAERS Safety Report 5603244-6 (Version None)
Quarter: 2008Q1

REPORT INFORMATION
  Report Type: 
  Country: None (occurrence: None)
  Receive Date: 20080125
  Receipt Date: 20080114
  Transmission Date: 20080703
  Serious: Yes (Congenital Anomaly, Other)
  Sender: FDA-Public Use
  Company Number: PT-PFIZER INC-2008004854

PATIENT

DRUGS (2)
  1. CHANTIX [Suspect]
  2. ORAL CONTRACEPTIVE NOS [Interacting]
     Indication: CONTRACEPTION
     Route: 048

REACTIONS (3)
  - CONGENITAL ANOMALY [None]
  - DRUG EXPOSURE DURING PREGNANCY [None]
  - DRUG INTERACTION [None]
